FAERS Safety Report 9043163 (Version 1)
Quarter: 2013Q1

REPORT INFORMATION
  Report Type: Report from Study
  Country: US (occurrence: US)
  Receive Date: 20130129
  Receipt Date: 20130129
  Transmission Date: 20140127
  Serious: Yes (Other)
  Sender: FDA-Public Use
  Company Number: US-ABBOTT-12P-163-0895329-00

PATIENT
  Sex: Female
  Weight: 70 kg

DRUGS (7)
  1. HUMIRA 40 MG/0.8 ML PEN [Suspect]
     Indication: RHEUMATOID ARTHRITIS
     Dosage: N
     Dates: start: 20101108, end: 201109
  2. HUMIRA 40 MG/0.8 ML PEN [Suspect]
     Dates: start: 201112
  3. HUMIRA 40 MG/0.8 ML PEN [Suspect]
  4. HUMIRA 40 MG/0.8 ML PEN [Suspect]
  5. LEVOTHYROXINE [Concomitant]
     Indication: THYROID DISORDER
     Dosage: DAILY
  6. PREDNISONE [Concomitant]
     Indication: PRODUCT USED FOR UNKNOWN INDICATION
  7. ACETAMINOPHEN [Concomitant]
     Indication: PRODUCT USED FOR UNKNOWN INDICATION

REACTIONS (4)
  - Osteoarthritis [Recovered/Resolved]
  - Joint stiffness [Unknown]
  - Drug dose omission [Unknown]
  - Rheumatoid arthritis [Unknown]
